FAERS Safety Report 11543688 (Version 1)
Quarter: 2015Q3

REPORT INFORMATION
  Report Type: Spontaneous
  Country: JP (occurrence: JP)
  Receive Date: 20150924
  Receipt Date: 20150924
  Transmission Date: 20151125
  Serious: Yes (Hospitalization, Other)
  Sender: FDA-Public Use
  Company Number: JP-009507513-1507JPN014129

PATIENT
  Age: 84 Year
  Sex: Female
  Weight: 40 kg

DRUGS (22)
  1. LEVOFLOXACIN. [Concomitant]
     Active Substance: LEVOFLOXACIN
     Indication: CELLULITIS
     Dosage: 500 MG, QD
     Route: 048
     Dates: start: 20150710, end: 20150710
  2. KAYEXALATE [Concomitant]
     Active Substance: SODIUM POLYSTYRENE SULFONATE
     Indication: HYPERKALAEMIA
     Dosage: 5 G, BID
     Route: 048
     Dates: start: 20150630, end: 20150705
  3. CUBICIN [Suspect]
     Active Substance: DAPTOMYCIN
     Indication: SOFT TISSUE INFECTION
     Dosage: 185 MG, QOD
     Route: 041
     Dates: start: 20150710, end: 20150711
  4. CUBICIN [Suspect]
     Active Substance: DAPTOMYCIN
     Indication: CELLULITIS STAPHYLOCOCCAL
     Dosage: 210 MG, QD
     Route: 041
     Dates: start: 201507, end: 20150720
  5. TOYOFAROL [Concomitant]
     Active Substance: ALFACALCIDOL
     Indication: BONE METABOLISM DISORDER
  6. CEFAZOLIN SODIUM. [Concomitant]
     Active Substance: CEFAZOLIN SODIUM
     Indication: CELLULITIS
     Dosage: 1 G, QD
     Route: 041
     Dates: start: 20150703, end: 20150705
  7. BROTIZOLAM [Concomitant]
     Active Substance: BROTIZOLAM
     Indication: INSOMNIA
     Dosage: 0.25 MG, PRN, TAKEN FROM AT LEAST BEFORE 2015
     Route: 048
  8. SODIUM BICARBONATE. [Concomitant]
     Active Substance: SODIUM BICARBONATE
     Indication: METABOLIC ACIDOSIS
     Dosage: 1 G, BID
     Route: 048
     Dates: start: 20140821
  9. TEICOPLANIN [Concomitant]
     Active Substance: TEICOPLANIN
     Indication: CELLULITIS STAPHYLOCOCCAL
     Dosage: 400 MG, BID
     Route: 041
     Dates: start: 20150705, end: 20150705
  10. TEICOPLANIN [Concomitant]
     Active Substance: TEICOPLANIN
     Dosage: 400 MG, QD
     Route: 041
     Dates: start: 20150706, end: 20150706
  11. LEVOFLOXACIN. [Concomitant]
     Active Substance: LEVOFLOXACIN
     Dosage: 250 MG, QOD
     Route: 048
     Dates: start: 20150712, end: 20150720
  12. FEBURIC [Concomitant]
     Active Substance: FEBUXOSTAT
     Indication: HYPERURICAEMIA
     Dosage: 10 MG, QD
     Route: 048
     Dates: start: 20150613, end: 20150730
  13. TEICOPLANIN [Concomitant]
     Active Substance: TEICOPLANIN
     Dosage: 200 MG, BID
     Route: 041
     Dates: start: 20150707, end: 20150707
  14. FERROMIA [Concomitant]
     Active Substance: FERROUS CITRATE
     Indication: IRON DEFICIENCY ANAEMIA
     Dosage: 50 MG, QD
     Route: 048
     Dates: start: 20140520, end: 20150730
  15. CALTAN [Concomitant]
     Active Substance: CALCIUM CARBONATE
     Indication: HYPERPHOSPHATAEMIA
     Dosage: 500 MG, TID
     Route: 048
     Dates: start: 20150326
  16. TAKEPRON [Concomitant]
     Active Substance: LANSOPRAZOLE
     Indication: GASTRITIS
     Dosage: 15 MG, QD
     Route: 048
     Dates: start: 20150608, end: 20150730
  17. WARFARIN [Concomitant]
     Active Substance: WARFARIN
     Indication: PROPHYLAXIS
     Dosage: 1.5 MG, QD
     Route: 048
     Dates: start: 20150619, end: 20150705
  18. TEICOPLANIN [Concomitant]
     Active Substance: TEICOPLANIN
     Dosage: 200 MG, QOD
     Route: 041
     Dates: start: 20150708, end: 20150710
  19. PIARLE [Concomitant]
     Indication: CONSTIPATION
     Dosage: 20 MG, BID
     Route: 048
     Dates: start: 20150527, end: 20150803
  20. CUBICIN [Suspect]
     Active Substance: DAPTOMYCIN
     Indication: ENDOCARDITIS
     Dosage: 185 MG, QD
     Route: 041
     Dates: start: 20150712, end: 201507
  21. TOYOFAROL [Concomitant]
     Active Substance: ALFACALCIDOL
     Indication: CHRONIC KIDNEY DISEASE
     Dosage: 0.25 MICROGRAM, QD
     Route: 048
     Dates: start: 20141225, end: 20150730
  22. LANDEL [Concomitant]
     Active Substance: UNSPECIFIED INGREDIENT
     Indication: HYPERTENSION
     Dosage: UNK, BID
     Route: 048
     Dates: start: 20150525

REACTIONS (4)
  - Mycosis fungoides [Recovering/Resolving]
  - Pyrexia [Recovered/Resolved]
  - White blood cell count increased [Unknown]
  - C-reactive protein increased [Recovered/Resolved]

NARRATIVE: CASE EVENT DATE: 201507
